FAERS Safety Report 23381831 (Version 1)
Quarter: 2024Q1

REPORT INFORMATION
  Report Type: Spontaneous
  Country: US (occurrence: US)
  Receive Date: 20240109
  Receipt Date: 20240109
  Transmission Date: 20240410
  Serious: Yes (Hospitalization, Other)
  Sender: FDA-Public Use
  Company Number: US-ABBVIE-5576892

PATIENT
  Age: 45 Year
  Sex: Male

DRUGS (1)
  1. VRAYLAR [Suspect]
     Active Substance: CARIPRAZINE
     Indication: Schizophrenia
     Dosage: UNKNOWN
     Route: 048
     Dates: end: 202312

REACTIONS (2)
  - Seizure [Unknown]
  - Hospitalisation [Unknown]

NARRATIVE: CASE EVENT DATE: 20231201
